FAERS Safety Report 4605817-6 (Version None)
Quarter: 2005Q1

REPORT INFORMATION
  Report Type: 
  Country: None (occurrence: None)
  Receive Date: 20050115
  Receipt Date: 20041203
  Transmission Date: 20050727
  Serious: Yes (Life-Threatening, Hospitalization)
  Sender: FDA-Public Use
  Company Number: A03200404079

PATIENT
  Age: 43 Year
  Sex: Female
  Weight: 97.0698 kg

DRUGS (5)
  1. AMBIEN [Suspect]
     Dosage: ^A LARGE AMOUNT^- ORAL
     Route: 048
     Dates: start: 20040401
  2. PEG-INTRON [Suspect]
     Indication: HEPATITIS C
     Dosage: 150 MCG 1/WEEK; SUBCUTANEOUS
     Route: 058
     Dates: start: 20031001, end: 20040401
  3. REBETOL [Suspect]
     Indication: HEPATITIS C
     Dosage: 1400 MG QD; ORAL
     Route: 048
     Dates: start: 20031001, end: 20040401
  4. ATIVAN [Suspect]
     Dosage: ORAL
     Route: 048
  5. COCAINE-POWDER-UNIT DOSE: UNKNOWN [Suspect]
     Indication: DRUG ABUSER
     Dosage: NASAL
     Route: 045

REACTIONS (2)
  - DEPRESSION [None]
  - INTENTIONAL MISUSE [None]
